FAERS Safety Report 8950937 (Version 1)
Quarter: 2012Q4

REPORT INFORMATION
  Report Type: 
  Country: IT (occurrence: IT)
  Receive Date: 20121207
  Receipt Date: 20121207
  Transmission Date: 20130627
  Serious: Yes (Hospitalization)
  Sender: FDA-Public Use
  Company Number: IT-WATSON-2012-21362

PATIENT
  Sex: Female

DRUGS (1)
  1. KENTERA (WATSON LABORATORIES) [Suspect]
     Indication: PRODUCT USED FOR UNKNOWN INDICATION
     Dosage: unknown
     Route: 065

REACTIONS (1)
  - Rash generalised [Recovering/Resolving]
